FAERS Safety Report 25501256 (Version 3)
Quarter: 2025Q4

REPORT INFORMATION
  Report Type: Spontaneous
  Country: US (occurrence: US)
  Receive Date: 20250701
  Receipt Date: 20251107
  Transmission Date: 20260117
  Serious: No
  Sender: SANOFI AVENTIS
  Company Number: US-SA-2025SA184328

PATIENT
  Age: 60 Year
  Sex: Female

DRUGS (3)
  1. DUPIXENT [Suspect]
     Active Substance: DUPILUMAB
     Indication: Eczema
     Dosage: 600 MG, 1X
     Route: 058
     Dates: start: 20250501, end: 20250501
  2. DUPIXENT [Suspect]
     Active Substance: DUPILUMAB
     Indication: Dermatitis atopic
     Dosage: 300 MG, QOW
     Route: 058
     Dates: start: 20250515
  3. HYDROXYZINE [Concomitant]
     Active Substance: HYDROXYZINE HYDROCHLORIDE
     Dosage: UNK

REACTIONS (5)
  - Muscle spasms [Recovered/Resolved]
  - Pain [Unknown]
  - Ear congestion [Unknown]
  - Arthralgia [Unknown]
  - Injection site pain [Recovered/Resolved]

NARRATIVE: CASE EVENT DATE: 20250101
